FAERS Safety Report 9855362 (Version 1)
Quarter: 2014Q1

REPORT INFORMATION
  Report Type: Spontaneous
  Country: DK (occurrence: DE)
  Receive Date: 20140130
  Receipt Date: 20140130
  Transmission Date: 20141002
  Serious: Yes (Hospitalization)
  Sender: FDA-Public Use
  Company Number: DE-FRI-1000053116

PATIENT
  Sex: Female

DRUGS (7)
  1. ESCITALOPRAM [Suspect]
     Indication: MAJOR DEPRESSION
     Dosage: 20 MG
     Route: 048
     Dates: start: 20120320
  2. LUAF41156 [Suspect]
     Indication: MAJOR DEPRESSION
     Dosage: 1 MG
     Route: 048
     Dates: start: 20120625
  3. MICARDIS [Concomitant]
     Indication: HYPERTENSION
     Dosage: 40 MG
     Route: 048
     Dates: start: 2008
  4. TORSEMIDE [Concomitant]
     Indication: HYPERTENSION
     Dosage: 20 MG
     Route: 048
     Dates: start: 2002
  5. METHOTREXATE SODIUM [Concomitant]
     Indication: PSORIASIS
     Dosage: 15 MG
     Route: 048
     Dates: start: 201003
  6. FOLIC ACID [Concomitant]
     Indication: PROPHYLAXIS
     Dosage: 5 MG
     Route: 048
     Dates: start: 201003
  7. PARACETAMOL [Concomitant]
     Dosage: 1000 MG
     Route: 048
     Dates: start: 20120820

REACTIONS (2)
  - Psoriasis [Unknown]
  - Condition aggravated [Unknown]
